FAERS Safety Report 9771397 (Version 1)
Quarter: 2013Q4

REPORT INFORMATION
  Report Type: Spontaneous
  Country: FR (occurrence: FR)
  Receive Date: 20131219
  Receipt Date: 20131219
  Transmission Date: 20140711
  Serious: Yes (Other)
  Sender: FDA-Public Use
  Company Number: FR-ROCHE-1322128

PATIENT
  Age: 75 Year
  Sex: Male

DRUGS (1)
  1. XELODA [Suspect]
     Indication: COLON CANCER METASTATIC
     Route: 065

REACTIONS (1)
  - Scleroderma [Not Recovered/Not Resolved]
